FAERS Safety Report 5442536-0 (Version None)
Quarter: 2007Q3

REPORT INFORMATION
  Report Type: 
  Country: None (occurrence: None)
  Receive Date: 20070830
  Receipt Date: 20070820
  Transmission Date: 20080115
  Serious: Yes (Other)
  Sender: FDA-Public Use
  Company Number: 017552

PATIENT
  Sex: Female

DRUGS (5)
  1. MEDROXYPROGESTERONE ACETATE [Suspect]
     Dosage: ORAL
     Route: 048
     Dates: start: 19951010
  2. PREMARIN [Suspect]
     Dosage: ORAL
     Route: 048
     Dates: start: 19950507
  3. CYCRIN [Suspect]
     Dosage: ORAL
     Route: 048
     Dates: start: 19950507
  4. PROVERA [Suspect]
     Dosage: ORAL
     Route: 048
     Dates: start: 19951010
  5. PREMPRO [Suspect]
     Dosage: ORAL
     Route: 048
     Dates: start: 19970825, end: 20020701

REACTIONS (1)
  - BREAST CANCER FEMALE [None]
